FAERS Safety Report 4733195-0 (Version None)
Quarter: 2005Q3

REPORT INFORMATION
  Report Type: 
  Country: None (occurrence: None)
  Receive Date: 20050725
  Receipt Date: 20040908
  Transmission Date: 20060218
  Serious: Yes (Death)
  Sender: FDA-Public Use
  Company Number: USA-2004-0016732

PATIENT
  Age: 20 Year
  Sex: Female
  Weight: 59.9 kg

DRUGS (2)
  1. MORPHINE SULFATE [Suspect]
  2. CITALOPRAM HYDROBROMIDE [Suspect]

REACTIONS (2)
  - ACCIDENTAL OVERDOSE [None]
  - MULTIPLE DRUG OVERDOSE [None]
